FAERS Safety Report 6741978-0 (Version None)
Quarter: 2010Q2

REPORT INFORMATION
  Report Type: 
  Country: None (occurrence: None)
  Receive Date: 20100526
  Receipt Date: 20100514
  Transmission Date: 20101027
  Serious: Yes (Hospitalization, Other)
  Sender: FDA-Public Use
  Company Number: US-ROCHE-676524

PATIENT
  Sex: Male
  Weight: 136.1 kg

DRUGS (27)
  1. PEGASYS [Suspect]
     Indication: HEPATITIS C
     Dosage: FORM: PRE-FILLED SYRINGE (PFS)
     Route: 058
     Dates: start: 20091014, end: 20091208
  2. COPEGUS [Suspect]
     Indication: HEPATITIS C
     Dosage: DIVIDED DOSES
     Route: 048
     Dates: start: 20091014, end: 20091208
  3. ASPIRIN [Suspect]
     Indication: DRUG USE FOR UNKNOWN INDICATION
     Route: 065
  4. PLAVIX [Suspect]
     Indication: DRUG USE FOR UNKNOWN INDICATION
     Route: 065
  5. METFORMIN HYDROCHLORIDE [Concomitant]
  6. GLIMEPIRIDE [Concomitant]
  7. NOVOLOG [Concomitant]
  8. LANTUS [Concomitant]
  9. NITROGLYCERIN [Concomitant]
     Indication: CHEST PAIN
  10. METHADONE [Concomitant]
     Route: 048
  11. MICRO-K [Concomitant]
  12. MILK THISTLE [Concomitant]
  13. TOPROL-XL [Concomitant]
     Route: 048
  14. TRAZODONE HCL [Concomitant]
     Route: 048
  15. AMARYL [Concomitant]
     Route: 048
  16. ASPIRIN [Concomitant]
     Route: 048
  17. CELEXA [Concomitant]
     Route: 048
  18. LACTULOSE [Concomitant]
     Route: 048
  19. LASIX [Concomitant]
     Route: 048
  20. LEVOTHYROXINE SODIUM [Concomitant]
     Route: 048
  21. XANAX [Concomitant]
     Route: 048
  22. MORPHINE [Concomitant]
  23. OMEPRAZOLE [Concomitant]
     Route: 048
  24. LANTUS [Concomitant]
     Route: 058
  25. COLACE [Concomitant]
     Route: 048
  26. CARAFATE [Concomitant]
     Route: 048
  27. METOLAZONE [Concomitant]

REACTIONS (11)
  - ANAEMIA [None]
  - BLOOD GLUCOSE INCREASED [None]
  - CHEST PAIN [None]
  - CHILLS [None]
  - CHOLELITHIASIS [None]
  - DRY EYE [None]
  - FALL [None]
  - HELICOBACTER INFECTION [None]
  - MYOCARDIAL INFARCTION [None]
  - SKIN DISCOLOURATION [None]
  - TREMOR [None]
